FAERS Safety Report 16806710 (Version 1)
Quarter: 2019Q3

REPORT INFORMATION
  Report Type: Spontaneous
  Country: US (occurrence: US)
  Receive Date: 20190913
  Receipt Date: 20190913
  Transmission Date: 20191005
  Serious: No
  Sender: FDA-Public Use
  Company Number: US-PFIZER INC-2019396076

PATIENT
  Age: 57 Year
  Sex: Female
  Weight: 54.43 kg

DRUGS (3)
  1. LEVOTHYROXINE. [Concomitant]
     Active Substance: LEVOTHYROXINE
     Indication: THYROID DISORDER
     Dosage: UNK (0.112 MG OR MCG)
  2. RELPAX [Suspect]
     Active Substance: ELETRIPTAN HYDROBROMIDE
     Indication: MIGRAINE
     Dosage: 40 MG, AS NEEDED
     Route: 048
  3. RELPAX [Suspect]
     Active Substance: ELETRIPTAN HYDROBROMIDE
     Dosage: 20 MG, UNK
     Route: 048

REACTIONS (13)
  - Headache [Recovering/Resolving]
  - Neck pain [Recovering/Resolving]
  - Feeling abnormal [Recovering/Resolving]
  - Recalled product administered [Unknown]
  - Influenza like illness [Recovering/Resolving]
  - Musculoskeletal stiffness [Recovering/Resolving]
  - Pain [Recovering/Resolving]
  - Intentional product misuse [Unknown]
  - Fatigue [Recovering/Resolving]
  - Swelling [Unknown]
  - Malaise [Recovering/Resolving]
  - Abdominal pain upper [Unknown]
  - Retching [Unknown]
